FAERS Safety Report 6410963-0 (Version None)
Quarter: 2009Q4

REPORT INFORMATION
  Report Type: 
  Country: None (occurrence: None)
  Receive Date: 20091020
  Receipt Date: 20091020
  Transmission Date: 20100525
  Serious: Yes (Life-Threatening)
  Sender: FDA-Public Use
  Company Number: None

PATIENT
  Sex: Female
  Weight: 92.9874 kg

DRUGS (4)
  1. CRESTOR [Suspect]
     Indication: ARTERIOSCLEROSIS
     Dosage: 1 TABLET DAILY PO
     Route: 048
     Dates: start: 20090122, end: 20090501
  2. CRESTOR [Suspect]
     Indication: BLOOD CHOLESTEROL INCREASED
     Dosage: 1 TABLET DAILY PO
     Route: 048
     Dates: start: 20090122, end: 20090501
  3. CRESTOR [Suspect]
     Indication: ARTERIOSCLEROSIS
     Dosage: 1 TABLET DAILY PO
     Route: 048
     Dates: start: 20090922, end: 20090925
  4. CRESTOR [Suspect]
     Indication: BLOOD CHOLESTEROL INCREASED
     Dosage: 1 TABLET DAILY PO
     Route: 048
     Dates: start: 20090922, end: 20090925

REACTIONS (1)
  - RENAL IMPAIRMENT [None]
